FAERS Safety Report 5066930-5 (Version None)
Quarter: 2006Q3

REPORT INFORMATION
  Report Type: 
  Country: None (occurrence: None)
  Receive Date: 20060726
  Receipt Date: 20060720
  Transmission Date: 20061208
  Serious: Yes (Death)
  Sender: FDA-Public Use
  Company Number: 2006PV014711

PATIENT
  Age: 52 Year
  Sex: Female
  Weight: 84.369 kg

DRUGS (5)
  1. BYETTA [Suspect]
     Indication: DIABETES MELLITUS NON-INSULIN-DEPENDENT
     Dosage: SEE IMAGE
     Route: 058
     Dates: start: 20060101, end: 20060201
  2. BYETTA [Suspect]
     Indication: DIABETES MELLITUS NON-INSULIN-DEPENDENT
     Dosage: SEE IMAGE
     Route: 058
     Dates: start: 20060201, end: 20060713
  3. LANTUS [Concomitant]
  4. METFORMIN HCL [Concomitant]
  5. ANTIBIOTICS [Concomitant]

REACTIONS (7)
  - DIABETIC ULCER [None]
  - FOOT FRACTURE [None]
  - NAUSEA [None]
  - RIB FRACTURE [None]
  - VOMITING [None]
  - WEIGHT DECREASED [None]
  - WRIST FRACTURE [None]
